FAERS Safety Report 17880896 (Version 1)
Quarter: 2020Q2

REPORT INFORMATION
  Report Type: Spontaneous
  Country: US (occurrence: US)
  Receive Date: 20200610
  Receipt Date: 20200610
  Transmission Date: 20200714
  Serious: Yes (Death)
  Sender: FDA-Public Use
  Company Number: None

PATIENT
  Age: 78 Year
  Sex: Female
  Weight: 74.48 kg

DRUGS (21)
  1. INLYTA [Suspect]
     Active Substance: AXITINIB
     Indication: RENAL NEOPLASM
     Route: 048
     Dates: start: 20200520, end: 20200610
  2. ASCORBIC ACID. [Concomitant]
     Active Substance: ASCORBIC ACID
  3. DICYCLOMINE [Concomitant]
     Active Substance: DICYCLOMINE HYDROCHLORIDE
  4. TUMERIC [Concomitant]
     Active Substance: HERBALS\TURMERIC
  5. DICLOFENAC [Concomitant]
     Active Substance: DICLOFENAC
  6. OMEPRAZOLE. [Concomitant]
     Active Substance: OMEPRAZOLE
  7. PROCHLORPERAZINE. [Concomitant]
     Active Substance: PROCHLORPERAZINE
  8. ZINC. [Concomitant]
     Active Substance: ZINC
  9. XARELTO [Concomitant]
     Active Substance: RIVAROXABAN
  10. DESMOPRESSIN [Concomitant]
     Active Substance: DESMOPRESSIN
  11. LEXAPRO [Concomitant]
     Active Substance: ESCITALOPRAM OXALATE
  12. ASPIRIN. [Concomitant]
     Active Substance: ASPIRIN
  13. HYDROCHLOROTHIAZIDE. [Concomitant]
     Active Substance: HYDROCHLOROTHIAZIDE
  14. HYDROCODONE [Concomitant]
     Active Substance: HYDROCODONE
  15. METFORMIN [Concomitant]
     Active Substance: METFORMIN HYDROCHLORIDE
  16. TRAZODONE [Concomitant]
     Active Substance: TRAZODONE HYDROCHLORIDE
  17. VITAMIN B12 [Concomitant]
     Active Substance: CYANOCOBALAMIN
  18. CLOTRIMAZOLE. [Concomitant]
     Active Substance: CLOTRIMAZOLE
  19. LOSARTAN. [Concomitant]
     Active Substance: LOSARTAN
  20. LIPITOR [Concomitant]
     Active Substance: ATORVASTATIN CALCIUM
  21. ZOFRAN [Concomitant]
     Active Substance: ONDANSETRON HYDROCHLORIDE

REACTIONS (1)
  - Death [None]

NARRATIVE: CASE EVENT DATE: 20200610
